FAERS Safety Report 8329420-X (Version None)
Quarter: 2012Q2

REPORT INFORMATION
  Report Type: 
  Country: None (occurrence: None)
  Receive Date: 20120502
  Receipt Date: 20120423
  Transmission Date: 20120825
  Serious: Yes (Other)
  Sender: FDA-Public Use
  Company Number: US-BAYER-200832659NA

PATIENT
  Sex: Female

DRUGS (1)
  1. MIRENA [Suspect]
     Indication: CONTRACEPTION
     Dosage: 20 UG/DAY CONTINUOUS
     Route: 015
     Dates: start: 20060101, end: 20110101

REACTIONS (4)
  - METRORRHAGIA [None]
  - VAGINAL HAEMORRHAGE [None]
  - PROGESTERONE DECREASED [None]
  - COITAL BLEEDING [None]
